FAERS Safety Report 9366383 (Version 1)
Quarter: 2013Q2

REPORT INFORMATION
  Report Type: Spontaneous
  Country: FR (occurrence: FR)
  Receive Date: 20130625
  Receipt Date: 20130625
  Transmission Date: 20140414
  Serious: Yes (Life-Threatening, Other)
  Sender: FDA-Public Use
  Company Number: FR-ASTRAZENECA-2013SE47801

PATIENT
  Age: 21620 Day
  Sex: Male

DRUGS (5)
  1. DIPRIVAN [Suspect]
     Indication: GENERAL ANAESTHESIA
     Dosage: 1.5 GAMMA
     Route: 042
     Dates: start: 20130322, end: 20130322
  2. REMIFENTANIL MYLAN [Suspect]
     Indication: GENERAL ANAESTHESIA
     Dosage: 0.1 GAMMA/KG/MIN
     Route: 042
     Dates: start: 20130322, end: 20130322
  3. SUXAMETHONIUM AGUETTANT [Suspect]
     Indication: GENERAL ANAESTHESIA
     Route: 042
     Dates: start: 20130322, end: 20130322
  4. CEFUROXIME PANPHARMA [Suspect]
     Indication: ANTIBIOTIC PROPHYLAXIS
     Route: 042
     Dates: start: 20130322, end: 20130322
  5. NIMBEX [Suspect]
     Indication: GENERAL ANAESTHESIA
     Route: 042
     Dates: start: 20130322, end: 20130322

REACTIONS (2)
  - Shock [Recovered/Resolved]
  - Sensorimotor disorder [Unknown]
